FAERS Safety Report 16354482 (Version 1)
Quarter: 2019Q2

REPORT INFORMATION
  Report Type: Spontaneous
  Country: DE (occurrence: DE)
  Receive Date: 20190524
  Receipt Date: 20190524
  Transmission Date: 20190711
  Serious: Yes (Other)
  Sender: FDA-Public Use
  Company Number: DE-STALLERGENES SAS-2067430

PATIENT
  Age: 51 Year

DRUGS (3)
  1. EBASTEL [Concomitant]
     Active Substance: EBASTINE
     Route: 048
  2. AARANE [Concomitant]
     Active Substance: CROMOLYN SODIUM
     Route: 055
  3. ORALAIR [Suspect]
     Active Substance: ANTHOXANTHUM ODORATUM POLLEN\DACTYLIS GLOMERATA POLLEN\LOLIUM PERENNE POLLEN\PHLEUM PRATENSE POLLEN\POA PRATENSIS POLLEN
     Indication: RHINITIS ALLERGIC
     Route: 060
     Dates: start: 20180321

REACTIONS (5)
  - Tachycardia [Recovered/Resolved]
  - Asthma [Recovered/Resolved]
  - Oral allergy syndrome [Recovered/Resolved]
  - Rhinitis [Recovered/Resolved]
  - Syncope [Recovered/Resolved]

NARRATIVE: CASE EVENT DATE: 20180722
